FAERS Safety Report 20852917 (Version 1)
Quarter: 2022Q2

REPORT INFORMATION
  Report Type: Spontaneous
  Country: US (occurrence: US)
  Receive Date: 20220520
  Receipt Date: 20220520
  Transmission Date: 20220721
  Serious: No
  Sender: FDA-Public Use
  Company Number: US-TARO PHARMACEUTICALS USA INC.-2021TAR00612

PATIENT

DRUGS (1)
  1. AMIODARONE HYDROCHLORIDE [Suspect]
     Active Substance: AMIODARONE HYDROCHLORIDE
     Indication: Product used for unknown indication
     Dosage: HALF THE 200 MG
     Route: 065

REACTIONS (7)
  - Nervousness [Unknown]
  - Alopecia [Unknown]
  - Feeling jittery [Unknown]
  - Tremor [Unknown]
  - Nausea [Unknown]
  - Photosensitivity reaction [Unknown]
  - Feeling cold [Unknown]
